FAERS Safety Report 6039362-0 (Version None)
Quarter: 2009Q1

REPORT INFORMATION
  Report Type: 
  Country: None (occurrence: None)
  Receive Date: 20090114
  Receipt Date: 20090107
  Transmission Date: 20090719
  Serious: Yes (Hospitalization)
  Sender: FDA-Public Use
  Company Number: 2006JP005064

PATIENT
  Age: 53 Year
  Sex: Female
  Weight: 70.2 kg

DRUGS (12)
  1. TACROLIMUS [Suspect]
     Indication: RHEUMATOID ARTHRITIS
     Dosage: 3 MG, ORAL
     Route: 048
     Dates: start: 20061012, end: 20070121
  2. METHOTREXATE TABLET [Concomitant]
  3. LOXONIN (LOXOPROFEN SODIUM) TABLET [Concomitant]
  4. PROTECADIN (LAFUTIDINE) TABLET [Concomitant]
  5. FOSAMAC (ALENDRONATE SODIUM) TABLET [Concomitant]
  6. MEDROL [Concomitant]
  7. FOLIAMIN (FOLIC ACID) TABLET [Concomitant]
  8. MERCAZOLE (THIAMAZOLE) TABLET [Concomitant]
  9. DIOVAN [Concomitant]
  10. FERROMIA (FERROUS CITRATE) TABLET [Concomitant]
  11. SELBEX (TEPRENONE) FINE GRANULE [Concomitant]
  12. AMLODIN (AMLODIPINE BESILATE) TABLET [Concomitant]

REACTIONS (2)
  - INJURY [None]
  - PYODERMA GANGRENOSUM [None]
